FAERS Safety Report 7775409-9 (Version None)
Quarter: 2011Q3

REPORT INFORMATION
  Report Type: 
  Country: None (occurrence: None)
  Receive Date: 20110923
  Receipt Date: 20110909
  Transmission Date: 20111222
  Serious: Yes (Other)
  Sender: FDA-Public Use
  Company Number: PHHY2011BR80709

PATIENT
  Age: 58 Year
  Sex: Male

DRUGS (4)
  1. GLICLAZIDE [Concomitant]
     Dosage: 4 MG, PER DAY
  2. DIOVAN [Suspect]
     Dosage: 320 MG, UNK
  3. METFORMIN HCL [Concomitant]
     Dosage: 850 MG, TID
  4. CLOPIDOGREL [Concomitant]
     Dosage: 75 MG, PER DAY

REACTIONS (16)
  - POLYURIA [None]
  - NOCTURIA [None]
  - MUSCULAR WEAKNESS [None]
  - BLOOD TRIGLYCERIDES INCREASED [None]
  - TYPE 2 DIABETES MELLITUS [None]
  - HYPERPHAGIA [None]
  - DRY MOUTH [None]
  - DYSLIPIDAEMIA [None]
  - BREATH ODOUR [None]
  - GLYCOSYLATED HAEMOGLOBIN INCREASED [None]
  - WEIGHT DECREASED [None]
  - DIABETIC NEUROPATHY [None]
  - MYOCARDIAL ISCHAEMIA [None]
  - PARAESTHESIA [None]
  - HYPERGLYCAEMIA [None]
  - VISION BLURRED [None]
